FAERS Safety Report 5888292-3 (Version None)
Quarter: 2008Q3

REPORT INFORMATION
  Report Type: 
  Country: None (occurrence: None)
  Receive Date: 20080918
  Receipt Date: 20070730
  Transmission Date: 20090109
  Serious: Yes (Disabling)
  Sender: FDA-Public Use
  Company Number: IT-ROCHE-571175

PATIENT
  Sex: Male
  Weight: 64 kg

DRUGS (2)
  1. PEGASYS [Suspect]
     Dosage: DOSE AND STRENGTH REPORTED AS 180.
     Route: 065
     Dates: start: 20070209, end: 20080205
  2. RIBAVIRIN [Suspect]
     Dosage: DOSE REPORTED AS 800.
     Route: 065
     Dates: start: 20070209, end: 20080205

REACTIONS (2)
  - ARTHRALGIA [None]
  - GAIT DISTURBANCE [None]
